FAERS Safety Report 7541691-6 (Version None)
Quarter: 2011Q2

REPORT INFORMATION
  Report Type: 
  Country: None (occurrence: None)
  Receive Date: 20110531
  Receipt Date: 20110518
  Transmission Date: 20111010
  Serious: Yes (Other)
  Sender: FDA-Public Use
  Company Number: 2011027306

PATIENT
  Age: 39 Year
  Sex: Female

DRUGS (2)
  1. ANAESTHETICS (ANAESTHETICS) [Concomitant]
  2. RHO(D) IMMUNE GLOBULIN NOS [Suspect]
     Indication: PROPHYLAXIS AGAINST RH ISOIMMUNISATION
     Dosage: 300 UG QD
     Route: 030
     Dates: start: 20100913, end: 20100913

REACTIONS (4)
  - DRUG EXPOSURE DURING PREGNANCY [None]
  - CAESAREAN SECTION [None]
  - TRANSMISSION OF AN INFECTIOUS AGENT VIA A MEDICINAL PRODUCT [None]
  - CYTOMEGALOVIRUS INFECTION [None]
